FAERS Safety Report 9360135 (Version 1)
Quarter: 2013Q2

REPORT INFORMATION
  Report Type: Spontaneous
  Country: US (occurrence: None)
  Receive Date: 20130620
  Receipt Date: 20130620
  Transmission Date: 20140414
  Serious: Yes (Life-Threatening, Hospitalization, Other)
  Sender: FDA-Public Use
  Company Number: None

PATIENT
  Age: 60 Year
  Sex: Male
  Weight: 111.4 kg

DRUGS (2)
  1. ABILIFY [Suspect]
     Indication: DEPRESSION
     Dosage: 2MG ABILIFY 630PM 1000PM MOUTH
     Route: 048
     Dates: start: 201303, end: 201304
  2. EFFEXOR [Suspect]
     Indication: DEPRESSION
     Dosage: EFFEXOR 225 MG ONCE IN AM MOUTH
     Route: 048
     Dates: start: 201209, end: 201304

REACTIONS (2)
  - Hallucination [None]
  - Abnormal dreams [None]
